FAERS Safety Report 7527431-5 (Version None)
Quarter: 2011Q2

REPORT INFORMATION
  Report Type: 
  Country: None (occurrence: None)
  Receive Date: 20110607
  Receipt Date: 20110531
  Transmission Date: 20111010
  Serious: Yes (Hospitalization, Other)
  Sender: FDA-Public Use
  Company Number: US-JNJFOC-20110400082

PATIENT
  Sex: Female
  Weight: 124.29 kg

DRUGS (21)
  1. CYMBALTA [Concomitant]
     Indication: DEPRESSION
     Route: 048
     Dates: start: 20070601
  2. ABILIFY [Concomitant]
     Indication: ANXIETY
     Route: 048
     Dates: start: 20070101, end: 20110324
  3. METFORMIN HCL [Concomitant]
     Route: 048
     Dates: start: 20110414
  4. DURAGESIC-100 [Suspect]
     Route: 062
     Dates: start: 20060101
  5. OXYCODONE HCL [Concomitant]
     Indication: PAIN
     Route: 048
     Dates: start: 20100101
  6. HYDROMORPHONE HCL [Concomitant]
     Route: 048
     Dates: start: 20101005
  7. TRIAMCINOLONE ACETONIDE [Concomitant]
     Dates: start: 20101214
  8. REMICADE [Suspect]
     Indication: PSORIASIS
     Route: 042
     Dates: start: 20100101, end: 20101101
  9. TOPAMAX [Concomitant]
     Indication: DEPRESSION
     Route: 048
     Dates: start: 20090101, end: 20110325
  10. LEVOXYL [Concomitant]
     Indication: THYROID DISORDER
     Route: 048
  11. CYMBALTA [Concomitant]
     Indication: POST CONCUSSION SYNDROME
     Route: 048
     Dates: start: 20070601
  12. TOPAMAX [Concomitant]
     Indication: POST CONCUSSION SYNDROME
     Route: 048
     Dates: start: 20090101, end: 20110325
  13. CYMBALTA [Concomitant]
     Indication: ANXIETY
     Route: 048
     Dates: start: 20070601
  14. ABILIFY [Concomitant]
     Indication: DEPRESSION
     Route: 048
     Dates: start: 20070101, end: 20110324
  15. ABILIFY [Concomitant]
     Indication: POST CONCUSSION SYNDROME
     Route: 048
     Dates: start: 20070101, end: 20110324
  16. SYNTHROID [Concomitant]
     Route: 048
     Dates: start: 20090619
  17. XANAX [Concomitant]
     Indication: ANXIETY
     Route: 048
     Dates: start: 20070101
  18. DURAGESIC-100 [Suspect]
     Indication: POST-TRAUMATIC PAIN
     Route: 062
     Dates: start: 20070301
  19. TOPAMAX [Concomitant]
     Indication: ANXIETY
     Route: 048
     Dates: start: 20090101, end: 20110325
  20. CLOBEX [Concomitant]
     Route: 065
     Dates: start: 20101214
  21. PENICILLIN VK [Concomitant]
     Route: 048
     Dates: start: 20100614

REACTIONS (4)
  - HYPOPNOEA [None]
  - ERYTHEMA [None]
  - INFUSION RELATED REACTION [None]
  - PANCREATITIS [None]
